FAERS Safety Report 21061445 (Version 4)
Quarter: 2022Q4

REPORT INFORMATION
  Report Type: Spontaneous
  Country: US (occurrence: US)
  Receive Date: 20220709
  Receipt Date: 20221028
  Transmission Date: 20230113
  Serious: No
  Sender: FDA-Public Use
  Company Number: US-BRISTOL-MYERS SQUIBB COMPANY-2022-071075

PATIENT
  Age: 81 Year
  Sex: Male

DRUGS (1)
  1. REVLIMID [Suspect]
     Active Substance: LENALIDOMIDE
     Indication: Neutropenia
     Dosage: FREQUENCY-1 CAPSULE BY MOUTH EVERY DAY FOR 3 WEEKS ON 1 WEEK OFF.
     Route: 048
     Dates: start: 20220608

REACTIONS (5)
  - Product dose omission issue [Unknown]
  - Decreased appetite [Recovered/Resolved]
  - White blood cell count decreased [Unknown]
  - Intentional product use issue [Unknown]
  - Weight decreased [Recovered/Resolved]
